FAERS Safety Report 9344736 (Version 1)
Quarter: 2013Q2

REPORT INFORMATION
  Report Type: Spontaneous
  Country: DE (occurrence: DE)
  Receive Date: 20130612
  Receipt Date: 20130612
  Transmission Date: 20140414
  Serious: Yes (Hospitalization)
  Sender: FDA-Public Use
  Company Number: DE-009507513-1306DEU003585

PATIENT
  Age: 56 Year
  Sex: Male
  Weight: 75 kg

DRUGS (4)
  1. SIMVASTATIN [Suspect]
     Indication: HYPERLIPIDAEMIA
     Dosage: 40 MILIGRAMS, 1 IN 1 DAY
     Route: 048
     Dates: start: 2007, end: 201101
  2. LOCOL 40 [Suspect]
     Indication: HYPERLIPIDAEMIA
     Dosage: UNK
     Route: 048
     Dates: start: 2000, end: 2007
  3. SORTIS [Suspect]
     Indication: HYPERLIPIDAEMIA
     Dosage: UNK
     Route: 048
     Dates: start: 2000, end: 2007
  4. VERAPAMIL [Concomitant]
     Indication: HYPERTENSION
     Dosage: 120 MG, UNK
     Route: 048
     Dates: start: 1999, end: 201101

REACTIONS (2)
  - Muscle atrophy [Not Recovered/Not Resolved]
  - Muscular weakness [Not Recovered/Not Resolved]
